FAERS Safety Report 14958573 (Version 1)
Quarter: 2018Q2

REPORT INFORMATION
  Report Type: Report from Study
  Country: BR (occurrence: BR)
  Receive Date: 20180531
  Receipt Date: 20180531
  Transmission Date: 20180711
  Serious: Yes (Death, Hospitalization, Other)
  Sender: FDA-Public Use
  Company Number: BR-BAYER-2018-025429

PATIENT
  Age: 47 Year
  Sex: Male

DRUGS (16)
  1. DRAMAMINE [Concomitant]
     Active Substance: DIMENHYDRINATE
  2. DIMORF [Concomitant]
     Active Substance: MORPHINE SULFATE
  3. STIVARGA [Suspect]
     Active Substance: REGORAFENIB
     Indication: COLON CANCER
     Dosage: 160 MG, QD
     Dates: start: 20180219, end: 20180228
  4. STIVARGA [Suspect]
     Active Substance: REGORAFENIB
     Indication: COLON CANCER
     Dosage: 160 MG, QD
     Dates: start: 20180323, end: 20180514
  5. OMEGA-3 ACIDS [Concomitant]
     Active Substance: OMEGA-3 FATTY ACIDS
     Dosage: 1 DF, BID
  6. NAUSEDRON [Concomitant]
     Active Substance: ONDANSETRON HYDROCHLORIDE
  7. LACTULONA [Concomitant]
  8. DECADRON [Concomitant]
     Active Substance: DEXAMETHASONE
  9. LUFTAL [Concomitant]
     Active Substance: DIMETHICONE
  10. PANTOPRAZOLE SODIUM. [Concomitant]
     Active Substance: PANTOPRAZOLE SODIUM
  11. STIVARGA [Suspect]
     Active Substance: REGORAFENIB
     Indication: COLON CANCER
     Dosage: 80 MG, QD
     Dates: start: 20180314, end: 20180322
  12. BROMOPRIDE [Concomitant]
     Active Substance: BROMOPRIDE
  13. AMPLICTIL [Concomitant]
     Active Substance: CHLORPROMAZINE HYDROCHLORIDE
  14. BUSCOPAN [Concomitant]
     Active Substance: BUTYLSCOPOLAMINE BROMIDE
  15. FLUCONAZOL [Concomitant]
     Active Substance: FLUCONAZOLE
  16. HALDOL [Concomitant]
     Active Substance: HALOPERIDOL

REACTIONS (12)
  - Vomiting [None]
  - Off label use [None]
  - Vomiting [Fatal]
  - Urinary retention [Fatal]
  - Urinary tract infection [Fatal]
  - Multiple organ dysfunction syndrome [Fatal]
  - Renal failure [Fatal]
  - Haemodialysis [None]
  - Diarrhoea [None]
  - Product use in unapproved indication [None]
  - Diaphragmatic disorder [Fatal]
  - Nausea [None]

NARRATIVE: CASE EVENT DATE: 201802
